FAERS Safety Report 5201371-9 (Version None)
Quarter: 2006Q4

REPORT INFORMATION
  Report Type: 
  Country: None (occurrence: None)
  Receive Date: 20061016
  Receipt Date: 20050915
  Transmission Date: 20070319
  Serious: Yes (Other)
  Sender: FDA-Public Use
  Company Number: 2005114504

PATIENT
  Age: 51 Year
  Sex: Male
  Weight: 82.5547 kg

DRUGS (12)
  1. NEURONTIN [Suspect]
     Indication: SLEEP DISORDER
     Dosage: 300 MG, 1 IN 1 D, ORAL
     Route: 048
     Dates: start: 20030101
  2. NEURONTIN [Suspect]
     Indication: SLEEP DISORDER
     Dosage: 300 MG, 1 IN 1 D, ORAL
     Route: 048
     Dates: start: 20050801
  3. TRAZODONE HCL [Suspect]
     Indication: SLEEP DISORDER
     Dosage: ORAL
     Route: 048
     Dates: end: 20050101
  4. ZOPICLONE (ZOPICLONE) [Suspect]
     Indication: INSOMNIA
     Dosage: 1 IN 1 D, ORAL
     Route: 048
     Dates: end: 20050101
  5. COUMADIN [Concomitant]
  6. LAMICTAL [Concomitant]
  7. STARLIX [Concomitant]
  8. TENEX [Concomitant]
  9. ATENOLOL [Concomitant]
  10. CLONIDINE [Concomitant]
  11. HYDREA [Concomitant]
  12. KLONOPIN [Concomitant]

REACTIONS (13)
  - BLOOD PRESSURE DECREASED [None]
  - BLOOD PRESSURE ORTHOSTATIC INCREASED [None]
  - CHEST DISCOMFORT [None]
  - CHEST PAIN [None]
  - DEPRESSION [None]
  - DIPLOPIA [None]
  - DRUG INEFFECTIVE [None]
  - MEMORY IMPAIRMENT [None]
  - PALPITATIONS [None]
  - POSTURAL ORTHOSTATIC TACHYCARDIA SYNDROME [None]
  - TACHYPHYLAXIS [None]
  - TRANSIENT ISCHAEMIC ATTACK [None]
  - VENTRICULAR EXTRASYSTOLES [None]
